FAERS Safety Report 7076909-X (Version None)
Quarter: 2010Q4

REPORT INFORMATION
  Report Type: 
  Country: None (occurrence: None)
  Receive Date: 20101101
  Receipt Date: 20101027
  Transmission Date: 20110411
  Serious: Yes (Other)
  Sender: FDA-Public Use
  Company Number: US-BAXTER-2010BH002123

PATIENT
  Age: 16 Year
  Sex: Male

DRUGS (10)
  1. LIDOCAINE HCL IN 5% DEXTROSE INJECTION IN PLASTIC CONTAINER [Suspect]
     Indication: HYPOTENSION
     Route: 042
     Dates: start: 20090115
  2. EPINEPHRINE [Suspect]
     Indication: HYPOTENSION
     Route: 041
     Dates: start: 20090115, end: 20090115
  3. EPINEPHRINE [Suspect]
     Route: 041
     Dates: start: 20090115
  4. INTRAVENOUS FLUID [Concomitant]
     Route: 042
     Dates: start: 20090115
  5. AMIODARONE HCL [Concomitant]
     Route: 042
  6. HEPARIN SODIUM [Concomitant]
     Route: 042
  7. MILRINONE [Concomitant]
     Route: 042
  8. FENTANYL CITRATE [Concomitant]
     Route: 042
  9. VECURONIUM BROMIDE [Concomitant]
     Route: 042
  10. INSULIN [Concomitant]
     Route: 042

REACTIONS (3)
  - DEVICE BREAKAGE [None]
  - DRUG DOSE OMISSION [None]
  - HYPOTENSION [None]
